FAERS Safety Report 9548595 (Version 1)
Quarter: 2013Q3

REPORT INFORMATION
  Report Type: Spontaneous
  Country: US (occurrence: US)
  Receive Date: 20130924
  Receipt Date: 20130924
  Transmission Date: 20140515
  Serious: No
  Sender: FDA-Public Use
  Company Number: US-009507513-1309USA003983

PATIENT
  Age: 70 Year
  Sex: Male

DRUGS (2)
  1. ZIOPTAN [Suspect]
     Indication: GLAUCOMA
     Dosage: ONE DROP IN EACH EYE ONCE A DAY
     Route: 047
     Dates: start: 201209, end: 201306
  2. PRAVASTATIN SODIUM [Concomitant]

REACTIONS (1)
  - Intraocular pressure increased [Recovered/Resolved]
